FAERS Safety Report 23396214 (Version 1)
Quarter: 2024Q1

REPORT INFORMATION
  Report Type: Spontaneous
  Country: FR (occurrence: FR)
  Receive Date: 20240112
  Receipt Date: 20240112
  Transmission Date: 20240410
  Serious: Yes (Hospitalization)
  Sender: FDA-Public Use
  Company Number: None

PATIENT
  Age: 27 Year
  Sex: Female
  Weight: 103 kg

DRUGS (1)
  1. TOCILIZUMAB [Suspect]
     Active Substance: TOCILIZUMAB
     Indication: Autoinflammatory disease
     Dosage: 162MG /1 TIME PER WEEK
     Route: 058
     Dates: start: 20230615, end: 20231112

REACTIONS (1)
  - Meningitis aseptic [Recovering/Resolving]

NARRATIVE: CASE EVENT DATE: 20231115
